FAERS Safety Report 20430892 (Version 1)
Quarter: 2022Q1

REPORT INFORMATION
  Report Type: Spontaneous
  Country: US (occurrence: US)
  Receive Date: 20220204
  Receipt Date: 20220204
  Transmission Date: 20220423
  Serious: No
  Sender: FDA-Public Use
  Company Number: US-OYSTER POINT PHARMA, INC.-2021OYS00098

PATIENT
  Age: 74 Year
  Sex: Female

DRUGS (1)
  1. TYRVAYA [Suspect]
     Active Substance: VARENICLINE TARTRATE
     Indication: Dry eye
     Dosage: UNK

REACTIONS (5)
  - Rhinorrhoea [Recovered/Resolved]
  - Burning sensation [Recovered/Resolved]
  - Ocular hyperaemia [Recovered/Resolved]
  - Eye disorder [Recovered/Resolved]
  - Hypersensitivity [Recovered/Resolved]
